FAERS Safety Report 6028003-4 (Version None)
Quarter: 2008Q4

REPORT INFORMATION
  Report Type: 
  Country: None (occurrence: None)
  Receive Date: 20081223
  Receipt Date: 20081217
  Transmission Date: 20090506
  Serious: Yes (Hospitalization)
  Sender: FDA-Public Use
  Company Number: B0551077A

PATIENT
  Age: 39 Year
  Sex: Male

DRUGS (1)
  1. LAMIVUDINE [Suspect]
     Indication: HEPATITIS B
     Dosage: 100 MG/ PER DAY /
     Dates: start: 20000301

REACTIONS (11)
  - ALANINE AMINOTRANSFERASE INCREASED [None]
  - BLOOD BILIRUBIN INCREASED [None]
  - CHROMATURIA [None]
  - DRUG RESISTANCE [None]
  - GENE MUTATION [None]
  - HEADACHE [None]
  - HEPATITIS B SURFACE ANTIGEN POSITIVE [None]
  - JAUNDICE [None]
  - NAUSEA [None]
  - PROTHROMBIN LEVEL DECREASED [None]
  - VOMITING [None]
